FAERS Safety Report 16885248 (Version 1)
Quarter: 2019Q4

REPORT INFORMATION
  Report Type: Spontaneous
  Country: US (occurrence: US)
  Receive Date: 20190809
  Receipt Date: 20190809
  Transmission Date: 20200122
  Serious: No
  Sender: FDA-Public Use
  Company Number: None

PATIENT
  Age: 63 Year
  Sex: Female
  Weight: 82.1 kg

DRUGS (9)
  1. PRAVASTINE [Concomitant]
     Active Substance: PRAVASTATIN SODIUM
  2. LISINOPRIL. [Suspect]
     Active Substance: LISINOPRIL
     Indication: HYPERTENSION
     Dosage: ?          QUANTITY:30 TOT - TOTAL;?
     Route: 048
     Dates: start: 2003, end: 2019
  3. ZINC. [Concomitant]
     Active Substance: ZINC
  4. CALCIUM [Concomitant]
     Active Substance: CALCIUM
  5. PAROXETINE. [Concomitant]
     Active Substance: PAROXETINE
  6. BENADRYL [Concomitant]
     Active Substance: DIPHENHYDRAMINE HYDROCHLORIDE
  7. MELATONIN [Concomitant]
     Active Substance: MELATONIN
  8. VIT D [Concomitant]
     Active Substance: VITAMIN D NOS
  9. MAGNESIUM [Concomitant]
     Active Substance: MAGNESIUM

REACTIONS (1)
  - Diarrhoea [None]

NARRATIVE: CASE EVENT DATE: 2003
